FAERS Safety Report 4633533-3 (Version None)
Quarter: 2005Q2

REPORT INFORMATION
  Report Type: 
  Country: None (occurrence: None)
  Receive Date: 20050331
  Receipt Date: 20041122
  Transmission Date: 20051028
  Serious: Yes (Other)
  Sender: FDA-Public Use
  Company Number: 200415654BCC

PATIENT
  Age: 67 Year
  Sex: Female
  Weight: 56.246 kg

DRUGS (8)
  1. ALEVE [Suspect]
     Dosage: 440 MG, BID, ORAL
     Route: 048
     Dates: start: 20040101
  2. HUMIRA [Suspect]
     Dosage: 40 MG, Q2WK, SUBCUTANEOUS
     Route: 058
  3. MOTRIN [Suspect]
     Dosage: 800 MG, TID, ORAL
     Route: 048
  4. VELTEX [Concomitant]
  5. METHOTREXATE [Concomitant]
  6. ALENDRONATE SODIUM [Concomitant]
  7. ESOMEPRAZOLE [Concomitant]
  8. AMLODIPINE BESYLATE [Concomitant]

REACTIONS (11)
  - ABDOMINAL PAIN UPPER [None]
  - DYSPEPSIA [None]
  - DYSPHAGIA [None]
  - GASTRIC ULCER [None]
  - HAEMATOCRIT DECREASED [None]
  - HEADACHE [None]
  - HIATUS HERNIA [None]
  - MELAENA [None]
  - OESOPHAGEAL STENOSIS [None]
  - PYREXIA [None]
  - SINUSITIS [None]
